FAERS Safety Report 12753781 (Version 2)
Quarter: 2016Q4

REPORT INFORMATION
  Report Type: Spontaneous
  Country: GB (occurrence: GB)
  Receive Date: 20160916
  Receipt Date: 20161017
  Transmission Date: 20170207
  Serious: Yes (Hospitalization, Disabling, Other)
  Sender: FDA-Public Use
  Company Number: GB-ACCORD-044021

PATIENT
  Age: 69 Year
  Sex: Female
  Weight: 69.85 kg

DRUGS (10)
  1. TRAMADOL/TRAMADOL HYDROCHLORIDE [Concomitant]
  2. CETIRIZINE [Concomitant]
     Active Substance: CETIRIZINE HYDROCHLORIDE
  3. GAVISCON ADVANCE [Concomitant]
     Active Substance: POTASSIUM BICARBONATE\SODIUM ALGINATE
  4. AMITRIPTYLINE [Concomitant]
     Active Substance: AMITRIPTYLINE
  5. CELECOXIB. [Concomitant]
     Active Substance: CELECOXIB
  6. TEMAZEPAM. [Concomitant]
     Active Substance: TEMAZEPAM
  7. SIMVASTATIN. [Suspect]
     Active Substance: SIMVASTATIN
     Indication: BLOOD CHOLESTEROL INCREASED
     Route: 048
     Dates: start: 20160412, end: 20160416
  8. BECLOMETASONE [Concomitant]
     Active Substance: BECLOMETHASONE DIPROPIONATE
  9. COLPERMIN [Concomitant]
  10. RABEPRAZOLE [Concomitant]
     Active Substance: RABEPRAZOLE

REACTIONS (5)
  - Decreased appetite [Unknown]
  - Drug-induced liver injury [Recovered/Resolved]
  - Malaise [Unknown]
  - Abdominal distension [Unknown]
  - Abdominal pain [Unknown]

NARRATIVE: CASE EVENT DATE: 20160415
